FAERS Safety Report 9458977 (Version 1)
Quarter: 2013Q3

REPORT INFORMATION
  Report Type: Spontaneous
  Country: US (occurrence: US)
  Receive Date: 20130814
  Receipt Date: 20130814
  Transmission Date: 20140515
  Serious: Yes (Other)
  Sender: FDA-Public Use
  Company Number: PHHY2013US086266

PATIENT
  Age: 78 Year
  Sex: Female

DRUGS (2)
  1. ASCRIPTIN BUFFERED REG STRENGTH TABLETS [Suspect]
     Indication: SINUS HEADACHE
     Dosage: 2 DF, PRN
     Route: 048
  2. ASCRIPTIN BUFFERED REG STRENGTH TABLETS [Suspect]
     Indication: MIGRAINE

REACTIONS (2)
  - Upper limb fracture [Unknown]
  - Incorrect drug administration duration [Unknown]
